FAERS Safety Report 9449767 (Version 1)
Quarter: 2013Q3

REPORT INFORMATION
  Report Type: Spontaneous
  Country: US (occurrence: US)
  Receive Date: 20130809
  Receipt Date: 20130809
  Transmission Date: 20140515
  Serious: Yes (Hospitalization)
  Sender: FDA-Public Use
  Company Number: US-CUBIST PHARMACEUTICAL, INC.-2013CBST000656

PATIENT
  Age: 51 Year
  Sex: Male
  Weight: 113.38 kg

DRUGS (3)
  1. ENTEREG [Suspect]
     Indication: PROPHYLAXIS
     Dosage: 12 MG, X1
     Route: 048
     Dates: start: 20130530, end: 20130530
  2. ENTEREG [Suspect]
     Indication: OFF LABEL USE
  3. LORATADINE [Suspect]
     Indication: PRODUCT USED FOR UNKNOWN INDICATION
     Dosage: UNK UNK, UNK

REACTIONS (1)
  - Myocardial infarction [Recovered/Resolved]
